FAERS Safety Report 25443153 (Version 2)
Quarter: 2025Q2

REPORT INFORMATION
  Report Type: Report from Study
  Country: CN (occurrence: CN)
  Receive Date: 20250617
  Receipt Date: 20250630
  Transmission Date: 20250716
  Serious: Yes (Other)
  Sender: TEVA
  Company Number: CN-TEVA-VS-3341591

PATIENT
  Age: 49 Year
  Sex: Male

DRUGS (11)
  1. BENDAMUSTINE [Suspect]
     Active Substance: BENDAMUSTINE
     Indication: T-cell lymphoma stage IV
     Route: 065
  2. DECITABINE [Suspect]
     Active Substance: DECITABINE
     Indication: T-cell lymphoma stage IV
     Route: 065
  3. ETOPOSIDE [Concomitant]
     Active Substance: ETOPOSIDE
     Indication: T-cell lymphoma stage IV
     Dosage: FOR THREE DAYS; CYCLICAL
     Route: 065
  4. PEGASPARGASE [Concomitant]
     Active Substance: PEGASPARGASE
     Indication: T-cell lymphoma stage IV
     Dosage: 2500?IU/M2 EVERY 21?DAYS
     Route: 065
  5. OXALIPLATIN [Concomitant]
     Active Substance: OXALIPLATIN
     Indication: T-cell lymphoma stage IV
     Route: 065
  6. VINORELBINE [Suspect]
     Active Substance: VINORELBINE TARTRATE
     Indication: T-cell lymphoma stage IV
     Route: 065
  7. PREDNISOLONE [Concomitant]
     Active Substance: PREDNISOLONE
     Indication: T-cell lymphoma stage IV
     Route: 065
  8. GEMCITABINE [Suspect]
     Active Substance: GEMCITABINE
     Indication: T-cell lymphoma stage IV
     Route: 065
  9. TUCIDINOSTAT [Suspect]
     Active Substance: TUCIDINOSTAT
     Indication: T-cell lymphoma stage IV
     Route: 065
  10. MITOXANTRONE HYDROCHLORIDE [Suspect]
     Active Substance: MITOXANTRONE HYDROCHLORIDE
     Indication: T-cell lymphoma stage IV
     Dosage: EVERY 21 DAYS
     Route: 065
  11. DEXAMETHASONE [Concomitant]
     Active Substance: DEXAMETHASONE
     Indication: T-cell lymphoma stage IV
     Dosage: FOR FOUR DAYS; CYCLICAL
     Route: 065

REACTIONS (3)
  - Cytopenia [Unknown]
  - Hepatic function abnormal [Unknown]
  - Drug ineffective [Unknown]
